FAERS Safety Report 8599450-1 (Version None)
Quarter: 2012Q3

REPORT INFORMATION
  Report Type: 
  Country: None (occurrence: None)
  Receive Date: 20120816
  Receipt Date: 20110811
  Transmission Date: 20120928
  Serious: Yes (Hospitalization)
  Sender: FDA-Public Use
  Company Number: DE-GILEAD-2008-0019205

PATIENT
  Sex: Female

DRUGS (2)
  1. CLOPIDOGREL [Concomitant]
     Indication: ANTICOAGULANT THERAPY
     Route: 048
     Dates: start: 20090214
  2. LETAIRIS [Suspect]
     Indication: PULMONARY ARTERIAL HYPERTENSION
     Route: 048
     Dates: start: 20081001

REACTIONS (3)
  - ATRIAL FLUTTER [None]
  - CORONARY ARTERY STENOSIS [None]
  - OEDEMA PERIPHERAL [None]
